FAERS Safety Report 8117571-4 (Version None)
Quarter: 2012Q1

REPORT INFORMATION
  Report Type: 
  Country: None (occurrence: None)
  Receive Date: 20120207
  Receipt Date: 20120128
  Transmission Date: 20120608
  Serious: No
  Sender: FDA-Public Use
  Company Number: US-BIOGENIDEC-2012BI003699

PATIENT
  Age: 41 Year
  Sex: Female

DRUGS (3)
  1. TYSABRI [Suspect]
     Indication: MULTIPLE SCLEROSIS
     Route: 042
     Dates: start: 20070921, end: 20100804
  2. NOVANTRONE [Concomitant]
  3. TYSABRI [Suspect]
     Route: 042
     Dates: start: 20111222

REACTIONS (1)
  - POOR VENOUS ACCESS [None]
